FAERS Safety Report 7428515-2 (Version None)
Quarter: 2011Q2

REPORT INFORMATION
  Report Type: 
  Country: None (occurrence: None)
  Receive Date: 20110415
  Receipt Date: 20110415
  Transmission Date: 20111010
  Serious: Yes (Hospitalization)
  Sender: FDA-Public Use
  Company Number: None

PATIENT
  Sex: Female
  Weight: 100.8 kg

DRUGS (2)
  1. TAXOL [Suspect]
     Dosage: 220 MG
     Dates: end: 20110406
  2. CARBOPLATIN [Suspect]
     Dosage: 600 MG
     Dates: end: 20110406

REACTIONS (6)
  - BLOOD GLUCOSE INCREASED [None]
  - BLOOD ELECTROLYTES DECREASED [None]
  - URINARY TRACT INFECTION [None]
  - PLEURAL EFFUSION [None]
  - DEHYDRATION [None]
  - ANAEMIA [None]
